FAERS Safety Report 7304102-1 (Version None)
Quarter: 2011Q1

REPORT INFORMATION
  Report Type: 
  Country: None (occurrence: None)
  Receive Date: 20110221
  Receipt Date: 20110216
  Transmission Date: 20110831
  Serious: Yes (Death)
  Sender: FDA-Public Use
  Company Number: PHHY2011US12838

PATIENT
  Sex: Male

DRUGS (12)
  1. AFINITOR [Suspect]
     Dosage: 10 MG, QD
     Route: 048
  2. MAALOX  CHW [Concomitant]
     Dosage: 600 MG, UNK
  3. DOC-Q-LACE [Concomitant]
     Dosage: 100 MG, UNK
  4. ADVIL [Concomitant]
     Dosage: 200 MG, UNK
  5. BENZONATATE [Concomitant]
     Dosage: 100 MG, UNK
  6. VICODIN [Concomitant]
     Dosage: 500 MG, UNK
  7. GLYBURIDE [Concomitant]
     Dosage: 2.5 MG, UNK
  8. RANITIDINE [Concomitant]
     Dosage: 150 MG, UNK
  9. PROCRIT [Concomitant]
     Dosage: 10000 ML, UNK
  10. PREDNISONE [Concomitant]
     Dosage: 20 MG, UNK
  11. SUTENT [Concomitant]
     Dosage: 50 MG, UNK
  12. SYMBICORT AER [Concomitant]
     Dosage: 160-4.5

REACTIONS (1)
  - DEATH [None]
